FAERS Safety Report 7180920-8 (Version None)
Quarter: 2010Q4

REPORT INFORMATION
  Report Type: 
  Country: None (occurrence: None)
  Receive Date: 20101221
  Receipt Date: 20100411
  Transmission Date: 20110411
  Serious: No
  Sender: FDA-Public Use
  Company Number: US-AMGEN-TCS405676

PATIENT

DRUGS (2)
  1. ENBREL [Suspect]
     Indication: PSORIATIC ARTHROPATHY
     Dosage: 50 MG, QWK
     Route: 058
     Dates: start: 20080207
  2. HYDROXYCHLOROQUINE SULFATE [Concomitant]
     Dosage: 400 MG, BID
     Dates: start: 20091001

REACTIONS (5)
  - GROIN PAIN [None]
  - HYPOAESTHESIA [None]
  - MUSCLE STRAIN [None]
  - OEDEMA PERIPHERAL [None]
  - PAIN [None]
